FAERS Safety Report 6609541-X (Version None)
Quarter: 2010Q1

REPORT INFORMATION
  Report Type: 
  Country: None (occurrence: None)
  Receive Date: 20100302
  Receipt Date: 20100222
  Transmission Date: 20100710
  Serious: Yes (Other)
  Sender: FDA-Public Use
  Company Number: US-JNJFOC-20100207416

PATIENT
  Sex: Female
  Weight: 67.13 kg

DRUGS (10)
  1. FENTANYL-100 [Suspect]
     Indication: PAIN
     Route: 062
  2. FENTANYL-100 [Suspect]
     Route: 062
  3. FENTANYL-100 [Suspect]
     Route: 062
  4. FENTANYL-100 [Suspect]
     Route: 062
  5. RITONAVIR [Interacting]
     Indication: HIV INFECTION
     Route: 048
  6. FLUCONAZOLE [Interacting]
     Indication: FUNGAL INFECTION
     Route: 048
  7. PREZISTA [Concomitant]
     Indication: HIV INFECTION
     Route: 048
  8. ISENTRESS [Concomitant]
     Indication: HIV INFECTION
     Route: 048
  9. TRUVADA [Concomitant]
     Indication: HIV INFECTION
     Dosage: 200/300 MG
     Route: 048
  10. HYDROCODONE [Concomitant]
     Indication: BREAKTHROUGH PAIN
     Dosage: 10/325MG
     Route: 065

REACTIONS (9)
  - CONTRAINDICATION TO MEDICAL TREATMENT [None]
  - DRUG INTERACTION [None]
  - FATIGUE [None]
  - HALLUCINATION [None]
  - INSOMNIA [None]
  - OESOPHAGITIS [None]
  - OROPHARYNGEAL PAIN [None]
  - SOMNOLENCE [None]
  - VISUAL IMPAIRMENT [None]
